FAERS Safety Report 5852652-7 (Version None)
Quarter: 2008Q3

REPORT INFORMATION
  Report Type: 
  Country: None (occurrence: None)
  Receive Date: 20080821
  Receipt Date: 20080814
  Transmission Date: 20090109
  Serious: Yes (Life-Threatening, Hospitalization)
  Sender: FDA-Public Use
  Company Number: B0533021A

PATIENT
  Age: 58 Year
  Sex: Female
  Weight: 76 kg

DRUGS (5)
  1. ARIXTRA [Suspect]
     Dosage: 2.5MG PER DAY
     Route: 058
     Dates: start: 20080616, end: 20080622
  2. ATENOLOL [Concomitant]
     Dosage: 50MG PER DAY
     Route: 065
  3. HYTACAND [Concomitant]
     Dosage: 1UNIT PER DAY
     Route: 065
  4. XANAX [Concomitant]
     Dosage: .5MG PER DAY
     Route: 065
  5. DOLIPRANE [Concomitant]
     Dosage: 1G THREE TIMES PER DAY
     Route: 065

REACTIONS (4)
  - ABDOMINAL PAIN [None]
  - ARTERIAL HAEMORRHAGE [None]
  - MALAISE [None]
  - SHOCK HAEMORRHAGIC [None]
